FAERS Safety Report 21749213 (Version 1)
Quarter: 2022Q4

REPORT INFORMATION
  Report Type: Spontaneous
  Country: US (occurrence: US)
  Receive Date: 20221219
  Receipt Date: 20221219
  Transmission Date: 20230112
  Serious: Yes (Other)
  Sender: FDA-Public Use
  Company Number: US-BEH-2022153014

PATIENT
  Age: 61 Year
  Sex: Male

DRUGS (2)
  1. PRIVIGEN [Suspect]
     Active Substance: HUMAN IMMUNOGLOBULIN G
     Indication: Chronic inflammatory demyelinating polyradiculoneuropathy
     Dosage: UNK UNK, QMT
     Route: 065
     Dates: start: 202210
  2. PRIVIGEN [Suspect]
     Active Substance: HUMAN IMMUNOGLOBULIN G
     Dosage: UNK UNK, QMT
     Route: 065
     Dates: start: 202211

REACTIONS (8)
  - Drug ineffective [Unknown]
  - Headache [Unknown]
  - Chest pain [Unknown]
  - Limb discomfort [Unknown]
  - Muscular weakness [Unknown]
  - Muscle spasms [Unknown]
  - Dysphagia [Unknown]
  - Blood pressure increased [Unknown]
